FAERS Safety Report 9014750 (Version 1)
Quarter: 2013Q1

REPORT INFORMATION
  Report Type: Spontaneous
  Country: US (occurrence: US)
  Receive Date: 20130115
  Receipt Date: 20130115
  Transmission Date: 20140127
  Serious: Yes (Other)
  Sender: FDA-Public Use
  Company Number: US-009507513-1301USA003213

PATIENT
  Age: 25 Year
  Sex: Male

DRUGS (6)
  1. SINGULAIR [Suspect]
     Route: 048
  2. XYZALL [Concomitant]
     Indication: ANXIETY
     Route: 048
  3. XANAX [Concomitant]
     Indication: ASTHMA
     Route: 048
  4. BRICANYL [Suspect]
     Dosage: RESPIRATORY (INHALATION)
  5. SYMBICORT [Suspect]
     Dosage: RESPIRATORY (INHALATION)
  6. NASACORT [Suspect]
     Dosage: RESPIRATORY (INHALATION)

REACTIONS (3)
  - Insomnia [Unknown]
  - Agitation [Unknown]
  - Aggression [Unknown]
